FAERS Safety Report 13476034 (Version 1)
Quarter: 2017Q2

REPORT INFORMATION
  Report Type: Spontaneous
  Country: US (occurrence: US)
  Receive Date: 20170425
  Receipt Date: 20170425
  Transmission Date: 20170830
  Serious: Yes (Other)
  Sender: FDA-Public Use
  Company Number: US-MYLANLABS-2017M1024834

PATIENT

DRUGS (3)
  1. HALOPERIDOL. [Suspect]
     Active Substance: HALOPERIDOL
     Indication: ANXIETY
     Dosage: NINE DOSES OF UNKNOWN STRENGTH OVER 3 DAYS FOLLOWED BY 5 MG AS NEEDED AT ADMISSION
     Route: 065
  2. HALOPERIDOL. [Suspect]
     Active Substance: HALOPERIDOL
     Indication: AGITATION
     Dosage: NINE DOSES OF UNKNOWN STRENGTH OVER 3 DAYS FOLLOWED BY 5 MG AS NEEDED AT ADMISSION
     Route: 065
  3. CLONAZEPAM. [Concomitant]
     Active Substance: CLONAZEPAM
     Indication: DEPRESSION
     Route: 065

REACTIONS (5)
  - Uterine contractions abnormal [Recovered/Resolved]
  - Dystonia [Recovered/Resolved]
  - Torticollis [Recovered/Resolved]
  - Foetal movement disorder [Recovering/Resolving]
  - Maternal exposure during pregnancy [Unknown]
